FAERS Safety Report 21542795 (Version 1)
Quarter: 2022Q4

REPORT INFORMATION
  Report Type: Spontaneous
  Country: US (occurrence: None)
  Receive Date: 20221101
  Receipt Date: 20221101
  Transmission Date: 20230112
  Serious: Yes (Death)
  Sender: FDA-Public Use
  Company Number: None

PATIENT
  Age: 80 Year
  Sex: Male

DRUGS (1)
  1. ARANESP [Suspect]
     Active Substance: DARBEPOETIN ALFA
     Dosage: OTHER STRENGTH : 40/0.4 UG/ML;?
     Route: 058
     Dates: start: 20220901, end: 20221001

REACTIONS (1)
  - Death [None]

NARRATIVE: CASE EVENT DATE: 20221014
